FAERS Safety Report 18244092 (Version 1)
Quarter: 2020Q3

REPORT INFORMATION
  Report Type: Spontaneous
  Country: CN (occurrence: CN)
  Receive Date: 20200908
  Receipt Date: 20200908
  Transmission Date: 20201103
  Serious: Yes (Death)
  Sender: FDA-Public Use
  Company Number: CN-009507513-2009CHN001420

PATIENT
  Age: 58 Year
  Sex: Female

DRUGS (7)
  1. VORICONAZOLE. [Suspect]
     Active Substance: VORICONAZOLE
     Indication: PNEUMONIA FUNGAL
  2. CASPOFUNGIN ACETATE. [Suspect]
     Active Substance: CASPOFUNGIN ACETATE
     Indication: PNEUMONIA FUNGAL
  3. METHYLPREDNISOLONE. [Concomitant]
     Active Substance: METHYLPREDNISOLONE
     Indication: IMMUNOGLOBULIN G4 RELATED DISEASE
  4. PIPERACILLIN SODIUM (+) SULBACTAM SODIUM [Suspect]
     Active Substance: PIPERACILLIN SODIUM\SULBACTAM SODIUM
     Indication: PNEUMONIA FUNGAL
  5. METHYLPREDNISOLONE. [Concomitant]
     Active Substance: METHYLPREDNISOLONE
     Indication: PACHYMENINGITIS
  6. CYCLOPHOSPHAMIDE. [Concomitant]
     Active Substance: CYCLOPHOSPHAMIDE
     Indication: PACHYMENINGITIS
  7. CYCLOPHOSPHAMIDE. [Concomitant]
     Active Substance: CYCLOPHOSPHAMIDE
     Indication: IMMUNOGLOBULIN G4 RELATED DISEASE

REACTIONS (1)
  - Drug ineffective [Fatal]
